FAERS Safety Report 20579558 (Version 2)
Quarter: 2022Q2

REPORT INFORMATION
  Report Type: Report from Study
  Country: IE (occurrence: IE)
  Receive Date: 20220310
  Receipt Date: 20220419
  Transmission Date: 20220721
  Serious: Yes (Hospitalization)
  Sender: FDA-Public Use
  Company Number: IE-PFIZER INC-202200350247

PATIENT
  Age: 83 Year
  Sex: Male

DRUGS (11)
  1. TAFAMIDIS [Suspect]
     Active Substance: TAFAMIDIS
     Indication: Amyloidosis
     Dosage: 61 MG, DAILY
     Route: 048
     Dates: start: 20211208, end: 20220128
  2. ROSUVASTATIN [Suspect]
     Active Substance: ROSUVASTATIN
     Indication: Carotid artery stenosis
     Dosage: 40 MG, EVERYDAY
     Route: 048
     Dates: end: 20220120
  3. INVESTIGATIONAL PRODUCT [Suspect]
     Active Substance: INVESTIGATIONAL PRODUCT
     Dosage: UNK
     Dates: start: 20200916, end: 20220128
  4. ASPIRIN [Concomitant]
     Active Substance: ASPIRIN
     Indication: Ischaemic cardiomyopathy
     Dosage: 75MG EVERY DAY
     Route: 048
  5. ALLOPURINOL [Concomitant]
     Active Substance: ALLOPURINOL
     Indication: Prophylaxis
     Dosage: 300MG EVERY DAY
     Route: 048
  6. FUROSEMIDE [Concomitant]
     Active Substance: FUROSEMIDE
     Indication: Ischaemic cardiomyopathy
     Dosage: 40MG EVERY DAY
     Route: 048
  7. FUROSEMIDE [Concomitant]
     Active Substance: FUROSEMIDE
     Dosage: 80MG EVERY DAY
     Route: 048
  8. OMEPRAZOLE [Concomitant]
     Active Substance: OMEPRAZOLE
     Indication: Gastrooesophageal reflux prophylaxis
     Dosage: 40 MG, EVERY DAY
     Route: 048
     Dates: start: 20190510
  9. TAMSULOSIN [Concomitant]
     Active Substance: TAMSULOSIN
     Indication: Urine flow decreased
     Dosage: 400MCG EVERY DAY
     Route: 048
  10. SPIRONOLACTONE [Concomitant]
     Active Substance: SPIRONOLACTONE
     Indication: Ischaemic cardiomyopathy
     Dosage: 25MG EVERY DAY
     Route: 048
     Dates: start: 20210321
  11. METFORMIN [Concomitant]
     Active Substance: METFORMIN HYDROCHLORIDE
     Indication: Pulmonary fibrosis
     Dosage: 1000MG EVERY DAY
     Route: 048
     Dates: start: 202104

REACTIONS (2)
  - Rhabdomyolysis [Recovered/Resolved]
  - Acute kidney injury [Unknown]

NARRATIVE: CASE EVENT DATE: 20220128
